FAERS Safety Report 4334704-6 (Version None)
Quarter: 2004Q2

REPORT INFORMATION
  Report Type: 
  Country: None (occurrence: None)
  Receive Date: 20040407
  Receipt Date: 20040407
  Transmission Date: 20050107
  Serious: Yes (Hospitalization)
  Sender: FDA-Public Use
  Company Number: None

PATIENT
  Age: 48 Year
  Sex: Female
  Weight: 86.1834 kg

DRUGS (2)
  1. CELEBREX [Suspect]
     Indication: ARTHRITIS
     Dosage: 1 QD PRN PO
     Route: 048
     Dates: start: 20010101, end: 20040328
  2. CELEBREX [Suspect]
     Indication: BACK PAIN
     Dosage: 1 QD PRN PO
     Route: 048
     Dates: start: 20010101, end: 20040328

REACTIONS (1)
  - HYPERSENSITIVITY [None]
